FAERS Safety Report 4701847-4 (Version None)
Quarter: 2005Q2

REPORT INFORMATION
  Report Type: 
  Country: None (occurrence: None)
  Receive Date: 20050627
  Receipt Date: 20050613
  Transmission Date: 20051028
  Serious: Yes (Other)
  Sender: FDA-Public Use
  Company Number: 430032N05USA

PATIENT
  Age: 60 Year
  Sex: Male
  Weight: 117 kg

DRUGS (14)
  1. NOVANTRONE [Suspect]
     Indication: MULTIPLE SCLEROSIS
     Dosage: 12 MG/M2, 1 IN 1 3 MONTHS
     Dates: start: 20020528, end: 20050615
  2. OMEPRAZOLE [Concomitant]
  3. AMITRIPTYLINE [Concomitant]
  4. CARBAMAZEPINE [Concomitant]
  5. BACLOFEN [Concomitant]
  6. OXBUTYNIN HYDROCHLORIDE [Concomitant]
  7. NAPROXEN [Concomitant]
  8. SIMVASTATIN [Concomitant]
  9. METFORMIN [Concomitant]
  10. IRBESARTAN [Concomitant]
  11. ASPIRIN [Concomitant]
  12. GABAPENTIN [Concomitant]
  13. INSULIN [Concomitant]
  14. LANSOPRAZOLE [Concomitant]

REACTIONS (1)
  - EJECTION FRACTION DECREASED [None]
